FAERS Safety Report 24646323 (Version 2)
Quarter: 2024Q4

REPORT INFORMATION
  Report Type: Spontaneous
  Country: GB (occurrence: GB)
  Receive Date: 20241121
  Receipt Date: 20241126
  Transmission Date: 20250115
  Serious: Yes (Other)
  Sender: TEVA
  Company Number: None

PATIENT
  Age: 15 Year
  Sex: Male
  Weight: 56 kg

DRUGS (1)
  1. TRIMETHOPRIM [Suspect]
     Active Substance: TRIMETHOPRIM
     Indication: Adverse drug reaction
     Route: 065
     Dates: start: 20240818, end: 20241101

REACTIONS (5)
  - Anaemia macrocytic [Not Recovered/Not Resolved]
  - Vitamin D deficiency [Not Recovered/Not Resolved]
  - Exercise tolerance decreased [Unknown]
  - Pain [Unknown]
  - Lethargy [Unknown]

NARRATIVE: CASE EVENT DATE: 20241030
